FAERS Safety Report 5005894-7 (Version None)
Quarter: 2006Q2

REPORT INFORMATION
  Report Type: 
  Country: None (occurrence: None)
  Receive Date: 20060517
  Receipt Date: 20060517
  Transmission Date: 20061013
  Serious: Yes (Hospitalization)
  Sender: FDA-Public Use
  Company Number: None

PATIENT
  Age: 64 Year
  Sex: Male

DRUGS (8)
  1. WARFARIN SODIUM [Suspect]
     Indication: ATRIAL FLUTTER
     Dosage: 5 MG QD
     Dates: start: 20001201
  2. AMOXICILLIN [Concomitant]
  3. OMEPRAZOLE [Concomitant]
  4. DALTEPARIN [Concomitant]
  5. POTASSIUM CHLORIDE [Concomitant]
  6. TRAZODONE HCL [Concomitant]
  7. ZOCOR [Concomitant]
  8. SPIRONOLACTONE [Concomitant]

REACTIONS (1)
  - GASTROINTESTINAL HAEMORRHAGE [None]
